FAERS Safety Report 26088586 (Version 2)
Quarter: 2025Q4

REPORT INFORMATION
  Report Type: Report from Study
  Country: US (occurrence: None)
  Receive Date: 20251125
  Receipt Date: 20251128
  Transmission Date: 20260117
  Serious: Yes (Other)
  Sender: UCB
  Company Number: US-UCBSA-2025073236

PATIENT
  Age: 4 Year
  Weight: 19.1 kg

DRUGS (1)
  1. FENFLURAMINE [Suspect]
     Active Substance: FENFLURAMINE
     Indication: Product used for unknown indication
     Dosage: 13.2 MILLIGRAM PER DAY

REACTIONS (1)
  - Tricuspid valve incompetence [Not Recovered/Not Resolved]
